FAERS Safety Report 21259209 (Version 1)
Quarter: 2022Q3

REPORT INFORMATION
  Report Type: Spontaneous
  Country: DE (occurrence: DE)
  Receive Date: 20220826
  Receipt Date: 20220826
  Transmission Date: 20221027
  Serious: Yes (Other)
  Sender: FDA-Public Use
  Company Number: DE-PFIZER INC-PV202200048623

PATIENT
  Age: 32 Year
  Sex: Female

DRUGS (1)
  1. AROMASIN [Suspect]
     Active Substance: EXEMESTANE
     Dosage: UNK
     Dates: start: 202006, end: 202011

REACTIONS (1)
  - Breast cancer recurrent [Unknown]

NARRATIVE: CASE EVENT DATE: 20201001
